FAERS Safety Report 6030234-4 (Version None)
Quarter: 2009Q1

REPORT INFORMATION
  Report Type: 
  Country: None (occurrence: None)
  Receive Date: 20090107
  Receipt Date: 20081229
  Transmission Date: 20090719
  Serious: Yes (Death, Hospitalization)
  Sender: FDA-Public Use
  Company Number: US-KINGPHARMUSA00001-K200801452

PATIENT
  Age: 82 Year
  Sex: Female

DRUGS (6)
  1. CORGARD [Suspect]
     Indication: ATRIAL FIBRILLATION
     Dosage: 80 MG, UNK
     Route: 048
     Dates: end: 20080901
  2. FLUINDIONE [Concomitant]
  3. LASIX [Concomitant]
  4. INIPOMP                            /01263201/ [Concomitant]
  5. CACIT                              /00108001/ [Concomitant]
  6. TEMESTA                            /00273201/ [Concomitant]

REACTIONS (13)
  - ARRHYTHMIA [None]
  - ATRIAL FIBRILLATION [None]
  - BRADYCARDIA [None]
  - CARDIAC MURMUR [None]
  - CARDIOMEGALY [None]
  - DEATH [None]
  - FALL [None]
  - FISTULA [None]
  - GASTROINTESTINAL HAEMORRHAGE [None]
  - HEAD INJURY [None]
  - MALAISE [None]
  - PLEURAL EFFUSION [None]
  - VERTIGO [None]
